FAERS Safety Report 15229453 (Version 10)
Quarter: 2019Q2

REPORT INFORMATION
  Report Type: Report from Study
  Country: None (occurrence: US)
  Receive Date: 20180802
  Receipt Date: 20190619
  Transmission Date: 20190711
  Serious: Yes (Hospitalization)
  Sender: FDA-Public Use
  Company Number: US-ABBVIE-18K-163-2438706-00

PATIENT
  Age: 63 Year
  Sex: Male
  Weight: 104.42 kg

DRUGS (3)
  1. HUMIRA [Suspect]
     Active Substance: ADALIMUMAB
     Indication: PSORIASIS
     Route: 058
     Dates: start: 20180325, end: 20180615
  2. HUMIRA [Suspect]
     Active Substance: ADALIMUMAB
     Route: 058
     Dates: start: 2018, end: 20180818
  3. HUMIRA [Suspect]
     Active Substance: ADALIMUMAB
     Route: 058
     Dates: start: 20180818, end: 201904

REACTIONS (33)
  - Surgical failure [Unknown]
  - Decreased appetite [Unknown]
  - Weight increased [Unknown]
  - Incorrect dose administered [Recovered/Resolved]
  - Post procedural complication [Recovering/Resolving]
  - Depression [Unknown]
  - Agitation [Recovered/Resolved]
  - Umbilical hernia [Recovered/Resolved]
  - Alopecia areata [Unknown]
  - Hair growth abnormal [Unknown]
  - Onycholysis [Unknown]
  - Psoriasis [Recovering/Resolving]
  - Skin discolouration [Recovered/Resolved]
  - Joint range of motion decreased [Recovering/Resolving]
  - Weight decreased [Unknown]
  - Hair texture abnormal [Unknown]
  - Pharyngeal swelling [Unknown]
  - Alopecia [Recovered/Resolved]
  - Peripheral swelling [Recovering/Resolving]
  - Device issue [Recovered/Resolved]
  - Mobility decreased [Recovering/Resolving]
  - Trichorrhexis [Unknown]
  - Blister rupture [Recovered/Resolved]
  - Oral fungal infection [Unknown]
  - Paraesthesia [Unknown]
  - Gait inability [Recovering/Resolving]
  - Skin erosion [Recovering/Resolving]
  - Nasopharyngitis [Recovering/Resolving]
  - Hepatic enzyme increased [Unknown]
  - Scar [Unknown]
  - Pain of skin [Recovering/Resolving]
  - Pain in extremity [Unknown]
  - Peripheral swelling [Unknown]

NARRATIVE: CASE EVENT DATE: 2018
